FAERS Safety Report 9405729 (Version 1)
Quarter: 2013Q3

REPORT INFORMATION
  Report Type: Spontaneous
  Country: US (occurrence: US)
  Receive Date: 20130717
  Receipt Date: 20130717
  Transmission Date: 20140515
  Serious: No
  Sender: FDA-Public Use
  Company Number: US-BAUSCH-BL-2012-000466

PATIENT
  Age: 82 Year
  Sex: Male

DRUGS (2)
  1. BESIVANCE (BESIFLOXACIN OPHTHALMIC SUSPENSION) 0.6% [Suspect]
     Indication: EYE INFECTION
     Dosage: 1 DROP IN EYE(S); THREE TIMES DAILY
     Route: 047
     Dates: start: 201202, end: 201202
  2. BESIVANCE (BESIFLOXACIN OPHTHALMIC SUSPENSION) 0.6% [Suspect]
     Dosage: 1 DROP TO BOTH EYES THREE TIMES DAILY
     Route: 047
     Dates: start: 201202, end: 201202

REACTIONS (2)
  - Ocular hyperaemia [Recovered/Resolved]
  - Eye swelling [Recovered/Resolved]
